FAERS Safety Report 6034561-6 (Version None)
Quarter: 2009Q1

REPORT INFORMATION
  Report Type: 
  Country: None (occurrence: None)
  Receive Date: 20090112
  Receipt Date: 20090106
  Transmission Date: 20090719
  Serious: Yes (Hospitalization)
  Sender: FDA-Public Use
  Company Number: TW-ABBOTT-08P-153-0494648-00

PATIENT
  Age: 78 Year

DRUGS (1)
  1. HUMIRA [Suspect]
     Indication: DRUG USE FOR UNKNOWN INDICATION
     Route: 050
     Dates: end: 20081031

REACTIONS (3)
  - COUGH [None]
  - PYREXIA [None]
  - TUBERCULOSIS [None]
